FAERS Safety Report 11717723 (Version 1)
Quarter: 2015Q4

REPORT INFORMATION
  Report Type: Spontaneous
  Country: US (occurrence: US)
  Receive Date: 20151110
  Receipt Date: 20151110
  Transmission Date: 20160304
  Serious: Yes (Other)
  Sender: FDA-Public Use
  Company Number: US-CIPLA LTD.-2015US08482

PATIENT

DRUGS (3)
  1. CARBOPLATIN. [Suspect]
     Active Substance: CARBOPLATIN
     Indication: NON-SMALL CELL LUNG CANCER
     Dosage: AUC 6, ON DAY 1 OF A 21-DAY CYCLE FOR 3 CYCLES
  2. PACLITAXEL. [Suspect]
     Active Substance: PACLITAXEL
     Indication: NON-SMALL CELL LUNG CANCER
     Dosage: 300 MG/M2 OR 260 MG/M2 ON DAY 1 OF A 21-DAY CYCLE FOR 3 CYCLES
  3. ONDANSETRON [Concomitant]
     Active Substance: ONDANSETRON
     Indication: PROPHYLAXIS OF NAUSEA AND VOMITING
     Dosage: 16 MG ORALLY OR 8 MG BEFORE THE CHEMOTHERAPY
     Route: 042

REACTIONS (2)
  - Peripheral motor neuropathy [Unknown]
  - Peroneal nerve palsy [Unknown]
